FAERS Safety Report 26123225 (Version 1)
Quarter: 2025Q4

REPORT INFORMATION
  Report Type: Spontaneous
  Country: US (occurrence: US)
  Receive Date: 20251204
  Receipt Date: 20251204
  Transmission Date: 20260118
  Serious: No
  Sender: Hugel Aesthetics
  Company Number: US-Hugel Aesthetics-2189859

PATIENT
  Age: 45 Year
  Sex: Female

DRUGS (2)
  1. LETYBO [Suspect]
     Active Substance: LETIBOTULINUMTOXINA-WLBG
     Indication: Product used for unknown indication
     Dates: start: 20250912, end: 20250912
  2. Drug Name: ASHWAGANDHA?[WITHANIA SOMNIFERA]?Generic Name: WITHANIA?SOM [Concomitant]

REACTIONS (4)
  - Paraesthesia [Recovered/Resolved]
  - Anxiety [Recovered/Resolved]
  - Hypoaesthesia [Recovered/Resolved]
  - Heart rate increased [Recovered/Resolved]

NARRATIVE: CASE EVENT DATE: 20250912
